FAERS Safety Report 7418989-5 (Version None)
Quarter: 2011Q2

REPORT INFORMATION
  Report Type: 
  Country: None (occurrence: None)
  Receive Date: 20110415
  Receipt Date: 20110408
  Transmission Date: 20111010
  Serious: Yes (Other)
  Sender: FDA-Public Use
  Company Number: A0923061A

PATIENT
  Age: 63 Year
  Sex: Male
  Weight: 113 kg

DRUGS (4)
  1. VIOXX [Suspect]
     Route: 065
  2. UNSPECIFIED MEDICATION [Concomitant]
  3. AVANDIA [Suspect]
     Route: 065
  4. GENOTROPIN [Suspect]
     Indication: ADJUVANT THERAPY
     Dosage: 1ML PER DAY
     Route: 042
     Dates: end: 20110101

REACTIONS (3)
  - MYOCARDIAL INFARCTION [None]
  - BLOOD TRIGLYCERIDES INCREASED [None]
  - BLOOD GLUCOSE INCREASED [None]
